FAERS Safety Report 24192922 (Version 2)
Quarter: 2024Q3

REPORT INFORMATION
  Report Type: Spontaneous
  Country: BR (occurrence: BR)
  Receive Date: 20240809
  Receipt Date: 20240814
  Transmission Date: 20241017
  Serious: Yes (Other)
  Sender: AMGEN
  Company Number: BR-AMGEN-BRASP2024154588

PATIENT
  Age: 61 Year

DRUGS (5)
  1. PEGFILGRASTIM [Suspect]
     Active Substance: PEGFILGRASTIM
     Indication: Colon cancer
     Dosage: UNK UNK, Q3WK
     Route: 065
     Dates: start: 20231103, end: 20240229
  2. CETUXIMAB [Concomitant]
     Active Substance: CETUXIMAB
     Dosage: UNK
     Route: 065
  3. LEUCOVORIN [Concomitant]
     Active Substance: LEUCOVORIN\LEUCOVORIN CALCIUM
     Dosage: UNK
     Route: 065
  4. FLUOROURACIL [Concomitant]
     Active Substance: FLUOROURACIL
  5. IRINOTECAN HYDROCHLORIDE [Concomitant]
     Active Substance: IRINOTECAN HYDROCHLORIDE

REACTIONS (1)
  - Febrile neutropenia [Recovered/Resolved]
